FAERS Safety Report 5842107-8 (Version None)
Quarter: 2008Q3

REPORT INFORMATION
  Report Type: 
  Country: None (occurrence: None)
  Receive Date: 20080812
  Receipt Date: 20080807
  Transmission Date: 20090109
  Serious: Yes (Death, Hospitalization, Other)
  Sender: FDA-Public Use
  Company Number: FR-BRISTOL-MYERS SQUIBB COMPANY-14292320

PATIENT
  Age: 61 Year
  Sex: Female

DRUGS (7)
  1. IXABEPILONE [Suspect]
     Indication: BREAST CANCER METASTATIC
     Route: 042
     Dates: start: 20080730, end: 20080730
  2. TRASTUZUMAB [Suspect]
     Indication: BREAST CANCER METASTATIC
     Route: 042
     Dates: start: 20080729, end: 20080729
  3. SOTALOL HCL [Concomitant]
     Dates: start: 19980101, end: 20080805
  4. NEXIUM [Concomitant]
     Dates: start: 20071022, end: 20080805
  5. FUROSEMIDE [Concomitant]
     Dates: start: 20071022, end: 20080805
  6. SPIRONOLACTONE [Concomitant]
     Dates: start: 20071022, end: 20080805
  7. OXYCONTIN [Concomitant]
     Dates: start: 20080710

REACTIONS (2)
  - BONE MARROW FAILURE [None]
  - CIRCULATORY COLLAPSE [None]
